FAERS Safety Report 7227007-3 (Version None)
Quarter: 2011Q1

REPORT INFORMATION
  Report Type: 
  Country: None (occurrence: None)
  Receive Date: 20110114
  Receipt Date: 20101226
  Transmission Date: 20110831
  Serious: No
  Sender: FDA-Public Use
  Company Number: US-B.I. PHARMACEUTICALS,INC./RIDGEFIELD-2011-BP-00101BP

PATIENT
  Sex: Male

DRUGS (12)
  1. TRAVATAN [Concomitant]
     Indication: GLAUCOMA
  2. FAMOTIDINE [Concomitant]
     Indication: RENAL FAILURE
     Dosage: 20 MG
     Route: 048
  3. VITAMIN D [Concomitant]
     Indication: ROUTINE HEALTH MAINTENANCE
     Dosage: 1000 MG
     Route: 048
  4. CRESTOR [Concomitant]
     Indication: BLOOD CHOLESTEROL INCREASED
     Dosage: 5 MG
     Route: 048
  5. PRADAXA [Suspect]
     Indication: ANTICOAGULANT THERAPY
     Dosage: 300 MG
     Route: 048
     Dates: start: 20101217
  6. AMLODIPINE BESYLATE [Concomitant]
     Indication: HYPERTENSION
     Dosage: 5 MG
     Route: 048
  7. BETIMOL [Concomitant]
     Indication: GLAUCOMA
  8. FOLBEE PLUS [Concomitant]
     Indication: RENAL FAILURE
     Dosage: 5 MG
     Route: 048
  9. TORSEMIDE [Concomitant]
     Indication: RENAL FAILURE
     Route: 048
  10. ROXICET [Concomitant]
     Indication: PAIN
     Route: 048
  11. ISOSORBIDE MONO ER [Concomitant]
     Indication: HYPERTENSION
     Dosage: 30 MG
     Route: 048
  12. HECTOROL [Concomitant]
     Indication: RENAL FAILURE
     Route: 048

REACTIONS (3)
  - APHTHOUS STOMATITIS [None]
  - LIP BLISTER [None]
  - LIP DISORDER [None]
